FAERS Safety Report 15939576 (Version 3)
Quarter: 2019Q3

REPORT INFORMATION
  Report Type: Spontaneous
  Country: US (occurrence: US)
  Receive Date: 20190208
  Receipt Date: 20190731
  Transmission Date: 20191004
  Serious: Yes (Other)
  Sender: FDA-Public Use
  Company Number: US-ASTRAZENECA-2019SE11881

PATIENT
  Age: 62 Year
  Sex: Female
  Weight: 104.3 kg

DRUGS (33)
  1. PREVACID [Suspect]
     Active Substance: LANSOPRAZOLE
     Route: 065
     Dates: start: 19950101
  2. GUAIFENESIN. [Concomitant]
     Active Substance: GUAIFENESIN
  3. ISOSORBIDE MONONITRATE. [Concomitant]
     Active Substance: ISOSORBIDE MONONITRATE
  4. SEVELAMER [Concomitant]
     Active Substance: SEVELAMER
  5. PRILOSEC [Suspect]
     Active Substance: OMEPRAZOLE MAGNESIUM
     Indication: GASTROOESOPHAGEAL REFLUX DISEASE
     Route: 048
     Dates: start: 1995, end: 2003
  6. PRILOSEC OTC [Suspect]
     Active Substance: OMEPRAZOLE MAGNESIUM
     Indication: GASTROOESOPHAGEAL REFLUX DISEASE
     Route: 048
     Dates: start: 2003, end: 2010
  7. ISOSORBIDE. [Concomitant]
     Active Substance: ISOSORBIDE
  8. AMLODIPINE [Concomitant]
     Active Substance: AMLODIPINE BESYLATE
  9. GABAPENTIN. [Concomitant]
     Active Substance: GABAPENTIN
  10. LEVOTHYROXINE. [Concomitant]
     Active Substance: LEVOTHYROXINE
  11. WARFARIN [Concomitant]
     Active Substance: WARFARIN
  12. FUROSEMIDE. [Concomitant]
     Active Substance: FUROSEMIDE
  13. LEVOTHYROXINE. [Concomitant]
     Active Substance: LEVOTHYROXINE
  14. FLOVENT [Concomitant]
     Active Substance: FLUTICASONE PROPIONATE
  15. WARFARIN [Concomitant]
     Active Substance: WARFARIN
  16. PRILOSEC [Suspect]
     Active Substance: OMEPRAZOLE MAGNESIUM
     Indication: GASTROOESOPHAGEAL REFLUX DISEASE
     Dosage: GENERIC, 20 MG, UNK
     Route: 065
     Dates: start: 2010, end: 2019
  17. CLONIDINE. [Concomitant]
     Active Substance: CLONIDINE
  18. ATORVASTATIN [Concomitant]
     Active Substance: ATORVASTATIN
  19. DIOVAN [Concomitant]
     Active Substance: VALSARTAN
  20. SIMVASTATIN. [Concomitant]
     Active Substance: SIMVASTATIN
  21. ATENOLOL. [Concomitant]
     Active Substance: ATENOLOL
  22. BUDESONIDE. [Concomitant]
     Active Substance: BUDESONIDE
  23. FLUTICASONE. [Concomitant]
     Active Substance: FLUTICASONE
  24. HYDROCORTISONE. [Concomitant]
     Active Substance: HYDROCORTISONE
  25. LEVOTHYROXINE. [Concomitant]
     Active Substance: LEVOTHYROXINE
  26. NITROGLYCERIN. [Concomitant]
     Active Substance: NITROGLYCERIN
  27. ASPIRIN. [Concomitant]
     Active Substance: ASPIRIN
  28. FUROSEMIDE. [Concomitant]
     Active Substance: FUROSEMIDE
  29. CARVEDILOL. [Concomitant]
     Active Substance: CARVEDILOL
  30. VERAPAMIL [Concomitant]
     Active Substance: VERAPAMIL HYDROCHLORIDE
  31. COLACE [Concomitant]
     Active Substance: DOCUSATE SODIUM
  32. HUMALOG [Concomitant]
     Active Substance: INSULIN LISPRO
  33. SERTRALINE [Concomitant]
     Active Substance: SERTRALINE HYDROCHLORIDE

REACTIONS (4)
  - Renal failure [Unknown]
  - Chronic kidney disease [Not Recovered/Not Resolved]
  - Acute kidney injury [Unknown]
  - End stage renal disease [Not Recovered/Not Resolved]
